FAERS Safety Report 14765476 (Version 2)
Quarter: 2018Q3

REPORT INFORMATION
  Report Type: Spontaneous
  Country: ES (occurrence: ES)
  Receive Date: 20180416
  Receipt Date: 20180716
  Transmission Date: 20181010
  Serious: Yes (Other)
  Sender: FDA-Public Use
  Company Number: ES-MYLANLABS-2018M1023077

PATIENT
  Age: 35 Year
  Sex: Male

DRUGS (3)
  1. AMOXICILINA NORMON [Suspect]
     Active Substance: AMOXICILLIN
     Indication: PHARYNGITIS
     Dosage: 1 G, Q8H
     Route: 048
     Dates: start: 20171108, end: 20171110
  2. IBUPROFEN. [Suspect]
     Active Substance: IBUPROFEN
     Indication: PHARYNGITIS
     Dosage: UNK
     Route: 048
     Dates: start: 20171107, end: 20171110
  3. DOLOCATIL [Suspect]
     Active Substance: ACETAMINOPHEN
     Indication: PHARYNGITIS
     Dosage: 1 G, Q8H
     Route: 048
     Dates: start: 20171107, end: 20171112

REACTIONS (2)
  - Rash macular [Recovered/Resolved]
  - Drug-induced liver injury [Recovered/Resolved]

NARRATIVE: CASE EVENT DATE: 20171108
